FAERS Safety Report 18511600 (Version 2)
Quarter: 2020Q4

REPORT INFORMATION
  Report Type: Spontaneous
  Country: CN (occurrence: CN)
  Receive Date: 20201117
  Receipt Date: 20201125
  Transmission Date: 20210114
  Serious: Yes (Hospitalization)
  Sender: FDA-Public Use
  Company Number: CN-ELI_LILLY_AND_COMPANY-CN202011003485

PATIENT
  Age: 55 Year
  Sex: Female
  Weight: 65 kg

DRUGS (2)
  1. HUMALOG MIX50/50 [Suspect]
     Active Substance: INSULIN LISPRO
     Indication: DIABETES MELLITUS
     Dosage: UNK UNK, UNKNOWN
     Route: 058
  2. HUMALOG MIX50/50 [Suspect]
     Active Substance: INSULIN LISPRO
     Dosage: 10 U, BID
     Route: 058
     Dates: start: 2017

REACTIONS (3)
  - Limb injury [Unknown]
  - Hand fracture [Unknown]
  - Lower limb fracture [Unknown]
